FAERS Safety Report 5340956-6 (Version None)
Quarter: 2007Q2

REPORT INFORMATION
  Report Type: 
  Country: None (occurrence: None)
  Receive Date: 20070405
  Receipt Date: 20061102
  Transmission Date: 20071010
  Serious: No
  Sender: FDA-Public Use
  Company Number: US200606005823

PATIENT
  Age: 58 Year
  Sex: Male

DRUGS (1)
  1. CYMBALTA [Suspect]
     Dosage: 60 MG
     Dates: start: 20060612

REACTIONS (3)
  - JOINT INJURY [None]
  - NAIL DISCOLOURATION [None]
  - NAIL OPERATION [None]
